FAERS Safety Report 6261371-7 (Version None)
Quarter: 2009Q3

REPORT INFORMATION
  Report Type: 
  Country: None (occurrence: None)
  Receive Date: 20090709
  Receipt Date: 20090707
  Transmission Date: 20100115
  Serious: Yes (Other)
  Sender: FDA-Public Use
  Company Number: ES-PFIZER INC-2009231823

PATIENT
  Age: 49 Year

DRUGS (2)
  1. SALAZOPYRIN [Suspect]
     Indication: ARTHRITIS
     Dosage: 1 G, 2X/DAY
     Route: 048
     Dates: start: 20090118, end: 20090219
  2. ARTRINOVO [Concomitant]
     Indication: ARTHRITIS
     Dosage: UNK
     Dates: start: 20080101

REACTIONS (3)
  - BRADYCARDIA [None]
  - CHEST PAIN [None]
  - HYPERTENSION [None]
